FAERS Safety Report 10447578 (Version 1)
Quarter: 2014Q3

REPORT INFORMATION
  Report Type: Spontaneous
  Country: US (occurrence: US)
  Receive Date: 20140911
  Receipt Date: 20140911
  Transmission Date: 20150326
  Serious: No
  Sender: FDA-Public Use
  Company Number: US-BEH-2014042973

PATIENT
  Sex: Female
  Weight: 69 kg

DRUGS (20)
  1. RANITIDINE [Concomitant]
     Active Substance: RANITIDINE\RANITIDINE HYDROCHLORIDE
  2. VENTOLIN [Concomitant]
     Active Substance: ALBUTEROL SULFATE
  3. ACIPHEX [Concomitant]
     Active Substance: RABEPRAZOLE SODIUM
  4. ALENDRONATE [Concomitant]
     Active Substance: ALENDRONATE SODIUM
  5. LOSARTAN [Concomitant]
     Active Substance: LOSARTAN
  6. ASPIRIN. [Concomitant]
     Active Substance: ASPIRIN
  7. SODIUM CHLORIDE. [Concomitant]
     Active Substance: SODIUM CHLORIDE
  8. SINGULAIR [Concomitant]
     Active Substance: MONTELUKAST SODIUM
  9. CLONAZEPAM. [Concomitant]
     Active Substance: CLONAZEPAM
  10. FENOFIBRATE. [Concomitant]
     Active Substance: FENOFIBRATE
  11. FLONASE [Concomitant]
     Active Substance: FLUTICASONE PROPIONATE
  12. SPIRIVA [Concomitant]
     Active Substance: TIOTROPIUM BROMIDE MONOHYDRATE
  13. ATENOLOL. [Concomitant]
     Active Substance: ATENOLOL
  14. GABAPENTIN. [Concomitant]
     Active Substance: GABAPENTIN
  15. CITRACAL [Concomitant]
     Active Substance: CALCIUM CITRATE
  16. HEPARIN [Concomitant]
     Active Substance: HEPARIN SODIUM
  17. EPINEPHRINE. [Concomitant]
     Active Substance: EPINEPHRINE
  18. ZEMAIRA [Suspect]
     Active Substance: .ALPHA.1-PROTEINASE INHIBITOR HUMAN
     Indication: ALPHA-1 ANTI-TRYPSIN DEFICIENCY
     Route: 042
  19. OXYGEN. [Concomitant]
     Active Substance: OXYGEN
  20. DIPHENHYDRAMINE [Concomitant]
     Active Substance: DIPHENHYDRAMINE

REACTIONS (1)
  - Chest pain [Unknown]
